FAERS Safety Report 5337319-6 (Version None)
Quarter: 2007Q1

REPORT INFORMATION
  Report Type: 
  Country: None (occurrence: None)
  Receive Date: 20070312
  Receipt Date: 20061213
  Transmission Date: 20070707
  Serious: Yes (Other)
  Sender: FDA-Public Use
  Company Number: 2006-0010779

PATIENT
  Age: 30 Year
  Sex: Female

DRUGS (6)
  1. ATRIPLA [Suspect]
     Indication: HIV INFECTION
     Dosage: 1 DOSAGE FORMS, 1 IN 1 D, ORAL
     Route: 048
     Dates: start: 20061019, end: 20061117
  2. TRUVADA [Concomitant]
  3. ATAZANAVIR (ATAZANAVIR) [Concomitant]
  4. BACTRIM [Concomitant]
  5. VALTREX [Concomitant]
  6. ACYCLOVIR [Concomitant]

REACTIONS (7)
  - ANXIETY [None]
  - CONFUSIONAL STATE [None]
  - DEPRESSION [None]
  - DYSPNOEA [None]
  - MYALGIA [None]
  - SUICIDAL IDEATION [None]
  - THINKING ABNORMAL [None]
